FAERS Safety Report 9245817 (Version 3)
Quarter: 2013Q4

REPORT INFORMATION
  Report Type: Spontaneous
  Country: FR (occurrence: FR)
  Receive Date: 20130422
  Receipt Date: 20131028
  Transmission Date: 20140711
  Serious: Yes (Hospitalization, Other)
  Sender: FDA-Public Use
  Company Number: FR-NOVOPROD-375862

PATIENT
  Age: 60 Year
  Sex: Male
  Weight: 85 kg

DRUGS (11)
  1. VICTOZA [Suspect]
     Indication: TYPE 2 DIABETES MELLITUS
     Dosage: 1.8 MG, QD
     Route: 058
     Dates: start: 20101015, end: 20130115
  2. STAGID [Suspect]
     Indication: PRODUCT USED FOR UNKNOWN INDICATION
     Dosage: UNKNOWN
     Route: 065
  3. GLUCOPHAGE [Concomitant]
     Dosage: 1 G IN MORNING, 1G AT NOON, 1G AT IN EVENING
  4. AMAREL [Concomitant]
  5. VASTEN                             /00880402/ [Concomitant]
  6. ATENOLOL [Concomitant]
     Dosage: 50 MG IN EVENING
  7. ACUILIX [Concomitant]
  8. ISOPTINE [Concomitant]
     Dosage: 200 MG IN MORNING
  9. PRAXILENE [Concomitant]
     Dosage: 200 (THREE TIMES DAILY)
  10. ZYLORIC [Concomitant]
     Dosage: 200 MG IN EVENING
  11. PLAVIX [Concomitant]
     Indication: PERIPHERAL ARTERIAL OCCLUSIVE DISEASE
     Dosage: 75 MG IN EVENING
     Route: 048

REACTIONS (3)
  - Pancreatic neoplasm [Not Recovered/Not Resolved]
  - Pancreatitis chronic [Not Recovered/Not Resolved]
  - Diabetes mellitus inadequate control [Unknown]
